FAERS Safety Report 10926038 (Version 1)
Quarter: 2015Q1

REPORT INFORMATION
  Report Type: Spontaneous
  Country: US (occurrence: None)
  Receive Date: 20150202
  Receipt Date: 20150202
  Transmission Date: 20150721
  Serious: Yes (Other)
  Sender: FDA-Public Use
  Company Number: TPA2012A05691

PATIENT
  Age: 84 Year
  Sex: Male
  Weight: 83.46 kg

DRUGS (3)
  1. UNSPECIFIED HISTAMINE TWO RECEPTOR BLOCKERS (H2-RECEPTOR ANTAGONISTS) [Concomitant]
  2. LORAZEPAM. [Concomitant]
     Active Substance: LORAZEPAM
  3. DEXILANT [Suspect]
     Active Substance: DEXLANSOPRAZOLE
     Indication: OESOPHAGITIS
     Route: 048
     Dates: start: 201206, end: 20120812

REACTIONS (6)
  - Incoherent [None]
  - Confusional state [None]
  - Transient ischaemic attack [None]
  - Fatigue [None]
  - Amnesia [None]
  - Dizziness [None]
